FAERS Safety Report 7486551-4 (Version None)
Quarter: 2011Q2

REPORT INFORMATION
  Report Type: 
  Country: None (occurrence: None)
  Receive Date: 20110516
  Receipt Date: 20110516
  Transmission Date: 20111010
  Serious: No
  Sender: FDA-Public Use
  Company Number: None

PATIENT
  Age: 42 Year
  Sex: Male
  Weight: 74.8435 kg

DRUGS (2)
  1. PROZAC [Suspect]
     Indication: DEPRESSION
     Dosage: 40MG ONCE DAILY PO
     Route: 048
  2. FLUOXETINE [Suspect]
     Indication: DEPRESSION
     Dosage: 80MG ONCE DAILY PO
     Route: 048

REACTIONS (6)
  - LIBIDO DECREASED [None]
  - MALE SEXUAL DYSFUNCTION [None]
  - ERECTILE DYSFUNCTION [None]
  - DISTURBANCE IN SEXUAL AROUSAL [None]
  - PENIS DISORDER [None]
  - ORGASMIC SENSATION DECREASED [None]
